FAERS Safety Report 23076127 (Version 1)
Quarter: 2023Q4

REPORT INFORMATION
  Report Type: Spontaneous
  Country: PR (occurrence: PR)
  Receive Date: 20231017
  Receipt Date: 20231017
  Transmission Date: 20240109
  Serious: No
  Sender: FDA-Public Use
  Company Number: PR-Blueprint Medicines Corporation-1582

PATIENT
  Sex: Male

DRUGS (1)
  1. AYVAKIT [Suspect]
     Active Substance: AVAPRITINIB
     Indication: Gastrointestinal stromal tumour
     Route: 065
     Dates: start: 20230901

REACTIONS (4)
  - Periorbital swelling [Unknown]
  - Peripheral swelling [Unknown]
  - Fatigue [Unknown]
  - Alopecia [Unknown]
